FAERS Safety Report 5796774-8 (Version None)
Quarter: 2008Q2

REPORT INFORMATION
  Report Type: 
  Country: None (occurrence: None)
  Receive Date: 20080630
  Receipt Date: 20080630
  Transmission Date: 20081010
  Serious: Yes (Life-Threatening, Hospitalization)
  Sender: FDA-Public Use
  Company Number: None

PATIENT
  Age: 29 Year
  Sex: Female
  Weight: 44.4525 kg

DRUGS (1)
  1. LUPRON [Suspect]
     Indication: PELVIC PAIN
     Dosage: 3.25 EVERY MONTH IM, 11.25 EVERY 3 MONTHS IM
     Route: 030
     Dates: start: 20071006, end: 20080615

REACTIONS (14)
  - AMNESIA [None]
  - ANGER [None]
  - ARTHRITIS [None]
  - ASTHENIA [None]
  - BLINDNESS [None]
  - BONE PAIN [None]
  - DYSARTHRIA [None]
  - IMPAIRED DRIVING ABILITY [None]
  - IMPAIRED WORK ABILITY [None]
  - MUSCLE SPASMS [None]
  - NIGHT SWEATS [None]
  - OSTEOPOROSIS [None]
  - STRABISMUS [None]
  - WEIGHT DECREASED [None]
